FAERS Safety Report 17365753 (Version 1)
Quarter: 2020Q1

REPORT INFORMATION
  Report Type: Spontaneous
  Country: US (occurrence: US)
  Receive Date: 20200204
  Receipt Date: 20200204
  Transmission Date: 20200409
  Serious: No
  Sender: FDA-Public Use
  Company Number: US-JNJFOC-20200202251

PATIENT
  Age: 54 Year
  Sex: Female
  Weight: 69.01 kg

DRUGS (1)
  1. STELARA [Suspect]
     Active Substance: USTEKINUMAB
     Indication: CROHN^S DISEASE
     Route: 058
     Dates: start: 201904, end: 20191122

REACTIONS (5)
  - Product storage error [Unknown]
  - Product colour issue [Unknown]
  - Dizziness [Unknown]
  - Product dose omission [Unknown]
  - Vision blurred [Unknown]

NARRATIVE: CASE EVENT DATE: 2019
